FAERS Safety Report 9924748 (Version 1)
Quarter: 2014Q1

REPORT INFORMATION
  Report Type: Spontaneous
  Country: US (occurrence: None)
  Receive Date: 20140224
  Receipt Date: 20140224
  Transmission Date: 20141002
  Serious: Yes (Disabling)
  Sender: FDA-Public Use
  Company Number: None

PATIENT
  Age: 57 Year
  Sex: Female
  Weight: 72.58 kg

DRUGS (2)
  1. LEVOFLOXACIN [Suspect]
     Indication: DIVERTICULITIS
     Dosage: 1 PILL ONCE DAILY
     Route: 048
     Dates: start: 20140210, end: 20140212
  2. LEVOFLOXACIN [Suspect]
     Indication: URINARY TRACT INFECTION
     Dosage: 1 PILL ONCE DAILY
     Route: 048
     Dates: start: 20140210, end: 20140212

REACTIONS (9)
  - Feeling of body temperature change [None]
  - Heart rate increased [None]
  - Feeling abnormal [None]
  - Tremor [None]
  - Nightmare [None]
  - Tremor [None]
  - Asthenia [None]
  - Insomnia [None]
  - Paraesthesia [None]
